FAERS Safety Report 12667314 (Version 1)
Quarter: 2016Q3

REPORT INFORMATION
  Report Type: Spontaneous
  Country: US (occurrence: None)
  Receive Date: 20160818
  Receipt Date: 20160818
  Transmission Date: 20161109
  Serious: Yes (Hospitalization)
  Sender: FDA-Public Use
  Company Number: None

PATIENT
  Age: 23 Year
  Sex: Female
  Weight: 65.77 kg

DRUGS (3)
  1. RECLIPSEN [Suspect]
     Active Substance: DESOGESTREL\ETHINYL ESTRADIOL
     Indication: CONTRACEPTION
     Route: 048
     Dates: start: 201212, end: 201605
  2. VITAMIN C [Concomitant]
     Active Substance: ASCORBIC ACID
  3. MULTIVITAMIN [Concomitant]
     Active Substance: VITAMINS

REACTIONS (9)
  - Muscle strain [None]
  - Dyspnoea exertional [None]
  - Back pain [None]
  - Pain in extremity [None]
  - Pulmonary embolism [None]
  - Musculoskeletal pain [None]
  - Cough [None]
  - Deep vein thrombosis [None]
  - Chest pain [None]

NARRATIVE: CASE EVENT DATE: 20160515
